FAERS Safety Report 10599725 (Version 1)
Quarter: 2014Q4

REPORT INFORMATION
  Report Type: Spontaneous
  Country: DE (occurrence: DE)
  Receive Date: 20141121
  Receipt Date: 20141121
  Transmission Date: 20150529
  Serious: Yes (Death, Congenital Anomaly)
  Sender: FDA-Public Use
  Company Number: DE-ABBVIE-14P-062-1310916-00

PATIENT

DRUGS (5)
  1. ERGENYL CHRONO [Suspect]
     Active Substance: VALPROIC ACID
     Indication: MATERNAL EXPOSURE TIMING UNSPECIFIED
     Route: 064
  2. ATOSIL [Suspect]
     Active Substance: PROMETHAZINE HYDROCHLORIDE
     Indication: MATERNAL EXPOSURE TIMING UNSPECIFIED
     Route: 064
  3. CITALOPRAM [Suspect]
     Active Substance: CITALOPRAM HYDROBROMIDE
     Indication: MATERNAL EXPOSURE TIMING UNSPECIFIED
     Route: 064
  4. DOXEPIN [Suspect]
     Active Substance: DOXEPIN
     Indication: MATERNAL EXPOSURE TIMING UNSPECIFIED
     Route: 064
  5. TRUXAL [Suspect]
     Active Substance: CHLORPROTHIXENE
     Indication: MATERNAL EXPOSURE TIMING UNSPECIFIED
     Route: 064

REACTIONS (5)
  - Abortion induced [Fatal]
  - Talipes [Unknown]
  - Spina bifida [Fatal]
  - Exposure during pregnancy [Unknown]
  - Spinal meningeal cyst [Fatal]
